FAERS Safety Report 7028722-7 (Version None)
Quarter: 2010Q3

REPORT INFORMATION
  Report Type: 
  Country: None (occurrence: None)
  Receive Date: 20100817
  Receipt Date: 20100802
  Transmission Date: 20110219
  Serious: Yes (Hospitalization, Other)
  Sender: FDA-Public Use
  Company Number: OMX-2010-00057

PATIENT
  Age: 53 Year
  Sex: Female

DRUGS (18)
  1. EVICEL [Suspect]
     Indication: HAEMOSTASIS
     Dates: start: 20100630
  2. PRESSURE REGULATOR [Suspect]
  3. APPLICATOR [Suspect]
  4. DESYREL [Concomitant]
  5. REMERON [Concomitant]
  6. LOPRESSOR [Concomitant]
  7. NORVASC [Concomitant]
  8. DIOVAN [Concomitant]
  9. PHOSLO CALCIUM (CALCIUM ACETATE) [Concomitant]
  10. LONITEN [Concomitant]
  11. ZESTRIL [Concomitant]
  12. NEPHRO-VITE (NEPHRO-VITE /01719801/) [Concomitant]
  13. PRANDIN (DEFLAZACORT) (TABLETS) [Concomitant]
  14. CELEXA [Concomitant]
  15. REGLAN [Concomitant]
  16. ABILIFY [Concomitant]
  17. LORTAB (VICODIN) [Concomitant]
  18. COLACE (DOCUSATE SODIUM) [Concomitant]

REACTIONS (21)
  - ABDOMINAL TENDERNESS [None]
  - ANEURYSM [None]
  - BLOOD ALBUMIN DECREASED [None]
  - BLOOD SODIUM DECREASED [None]
  - CLOSTRIDIUM DIFFICILE COLITIS [None]
  - DIARRHOEA [None]
  - FISTULA [None]
  - GASTROENTERITIS [None]
  - HAEMATOCRIT DECREASED [None]
  - HAEMODIALYSIS [None]
  - HAEMOGLOBIN DECREASED [None]
  - HYPERTENSION [None]
  - INTERNATIONAL NORMALISED RATIO DECREASED [None]
  - MEAN CELL HAEMOGLOBIN CONCENTRATION DECREASED [None]
  - MEAN CELL HAEMOGLOBIN DECREASED [None]
  - NAUSEA [None]
  - PERINEAL ABSCESS [None]
  - RED BLOOD CELL COUNT DECREASED [None]
  - RED CELL DISTRIBUTION WIDTH INCREASED [None]
  - RENAL FAILURE CHRONIC [None]
  - VOMITING [None]
